FAERS Safety Report 18428741 (Version 1)
Quarter: 2020Q4

REPORT INFORMATION
  Report Type: Other
  Country: CA (occurrence: CA)
  Receive Date: 20201027
  Receipt Date: 20201027
  Transmission Date: 20210114
  Serious: Yes (Other)
  Sender: FDA-Public Use
  Company Number: CA-CELLTRION INC.-2020CA029343

PATIENT

DRUGS (26)
  1. HYDROMORPHONE [Concomitant]
     Active Substance: HYDROMORPHONE
  2. NYSTATIN. [Concomitant]
     Active Substance: NYSTATIN
  3. FLUOXETINE [Concomitant]
     Active Substance: FLUOXETINE HYDROCHLORIDE
  4. METHYLPREDNISOLONE SODIUM SUCCINATE. [Concomitant]
     Active Substance: METHYLPREDNISOLONE SODIUM SUCCINATE
     Indication: PREMEDICATION
     Dosage: 100.0 MILLIGRAM
     Route: 042
  5. SYNTHROID [Concomitant]
     Active Substance: LEVOTHYROXINE SODIUM
  6. GABAPENTIN. [Concomitant]
     Active Substance: GABAPENTIN
  7. MACROGOL [Concomitant]
     Active Substance: POLYETHYLENE GLYCOLS
  8. MAGNESIUM [Concomitant]
     Active Substance: MAGNESIUM
  9. RITUXIMAB (UNKNOWN) [Suspect]
     Active Substance: RITUXIMAB
     Indication: AUTOIMMUNE HEPATITIS
     Dosage: 1000.0 MILLIGRAM
     Route: 042
  10. DOCUSATE SODIUM. [Concomitant]
     Active Substance: DOCUSATE SODIUM
  11. PANTOLOC [PANTOPRAZOLE] [Concomitant]
     Active Substance: PANTOPRAZOLE SODIUM
  12. TACROLIMUS. [Concomitant]
     Active Substance: TACROLIMUS
  13. AMITRIPTYLINE [Concomitant]
     Active Substance: AMITRIPTYLINE
  14. BENADRYL [Concomitant]
     Active Substance: DIPHENHYDRAMINE HYDROCHLORIDE
     Indication: PREMEDICATION
     Dosage: 50.0 MILLIGRAM
     Route: 048
  15. GRAVOL [Concomitant]
     Active Substance: DIMENHYDRINATE
  16. TYLENOL [Concomitant]
     Active Substance: ACETAMINOPHEN
     Indication: PREMEDICATION
     Dosage: 650.0 MILLIGRAM
     Route: 048
  17. ZOLMITRIPTAN. [Concomitant]
     Active Substance: ZOLMITRIPTAN
  18. AZATHIOPRINE. [Concomitant]
     Active Substance: AZATHIOPRINE
  19. DESIPRAMINE [Concomitant]
     Active Substance: DESIPRAMINE
  20. HYDROXYZINE [Concomitant]
     Active Substance: HYDROXYZINE HYDROCHLORIDE
  21. LORAZEPAM. [Concomitant]
     Active Substance: LORAZEPAM
  22. PREDNISONE. [Concomitant]
     Active Substance: PREDNISONE
  23. VITAMIN D3 [Concomitant]
     Active Substance: CHOLECALCIFEROL
  24. FENTANYL. [Concomitant]
     Active Substance: FENTANYL
  25. FUROSEMIDE. [Concomitant]
     Active Substance: FUROSEMIDE
  26. URSODIOL. [Concomitant]
     Active Substance: URSODIOL

REACTIONS (2)
  - Influenza [Recovered/Resolved]
  - Off label use [Unknown]
